FAERS Safety Report 14529202 (Version 1)
Quarter: 2018Q1

REPORT INFORMATION
  Report Type: Spontaneous
  Country: US (occurrence: US)
  Receive Date: 20180213
  Receipt Date: 20180213
  Transmission Date: 20180509
  Serious: No
  Sender: FDA-Public Use
  Company Number: None

PATIENT
  Age: 79 Year
  Sex: Male

DRUGS (11)
  1. ASPIRIN. [Concomitant]
     Active Substance: ASPIRIN
  2. VITD [Concomitant]
  3. ADVAIR HFA [Concomitant]
     Active Substance: FLUTICASONE PROPIONATE\SALMETEROL XINAFOATE
  4. DILTIAZEM. [Concomitant]
     Active Substance: DILTIAZEM
  5. ELIQUIS [Concomitant]
     Active Substance: APIXABAN
  6. LEXAPR [Concomitant]
  7. ZYTIGA [Suspect]
     Active Substance: ABIRATERONE ACETATE
     Indication: PROSTATE CANCER
     Dosage: 03/SEP/18 TO ONGOING
     Route: 048
  8. XGEVA [Concomitant]
     Active Substance: DENOSUMAB
  9. CALCIUM [Concomitant]
     Active Substance: CALCIUM
  10. LUPRON [Concomitant]
     Active Substance: LEUPROLIDE ACETATE
  11. ALBURTEROL [Concomitant]

REACTIONS (3)
  - Haemorrhage [None]
  - Joint injury [None]
  - Fall [None]
